FAERS Safety Report 7219633-2 (Version None)
Quarter: 2011Q1

REPORT INFORMATION
  Report Type: 
  Country: None (occurrence: None)
  Receive Date: 20110111
  Receipt Date: 20110103
  Transmission Date: 20110831
  Serious: Yes (Other)
  Sender: FDA-Public Use
  Company Number: US-SANOFI-AVENTIS-2010SA075396

PATIENT
  Age: 79 Year
  Sex: Female
  Weight: 79 kg

DRUGS (15)
  1. THEOPHYLLINE [Concomitant]
  2. FUROSEMIDE [Concomitant]
  3. OPTICLICK [Suspect]
     Indication: TYPE 2 DIABETES MELLITUS
  4. KLOR-CON [Concomitant]
  5. HYDROCODONE [Concomitant]
  6. NOVOLIN R [Concomitant]
     Dosage: SLIDING SCALE
  7. METOPROLOL TARTRATE [Concomitant]
  8. LANSOPRAZOLE [Concomitant]
  9. CYANOCOBALAMIN [Concomitant]
  10. FOLIC ACID [Concomitant]
  11. LANOXIN [Concomitant]
  12. LEXAPRO [Concomitant]
     Dosage: TAKES 3 TABLETS EVERY MORNING
  13. ARANESP [Concomitant]
  14. LANTUS [Suspect]
     Indication: TYPE 2 DIABETES MELLITUS
     Dosage: IN THE MORNING DOSE:20 UNIT(S)
     Route: 058
     Dates: start: 20061001
  15. VITAMIN TAB [Concomitant]

REACTIONS (3)
  - HEART RATE DECREASED [None]
  - DEVICE MALFUNCTION [None]
  - BLOOD GLUCOSE INCREASED [None]
